FAERS Safety Report 10688588 (Version 1)
Quarter: 2015Q1

REPORT INFORMATION
  Report Type: Spontaneous
  Country: CH (occurrence: CH)
  Receive Date: 20150102
  Receipt Date: 20150102
  Transmission Date: 20150720
  Serious: Yes (Hospitalization, Other)
  Sender: FDA-Public Use
  Company Number: CH-ELI_LILLY_AND_COMPANY-CH201412009709

PATIENT
  Age: 14 Year
  Sex: Male
  Weight: 54 kg

DRUGS (4)
  1. ZYPREXA [Suspect]
     Active Substance: OLANZAPINE
     Indication: AUTISM
     Dosage: 10 MG, BID
     Route: 048
     Dates: start: 2014, end: 20141029
  2. LORAZEPAM. [Concomitant]
     Active Substance: LORAZEPAM
  3. HALOPERIDOL. [Suspect]
     Active Substance: HALOPERIDOL
     Indication: AUTISM SPECTRUM DISORDER
     Dosage: 1.5 MG, TID
     Route: 048
     Dates: start: 2014, end: 20141029
  4. SEROQUEL [Suspect]
     Active Substance: QUETIAPINE FUMARATE
     Indication: AUTISM SPECTRUM DISORDER
     Dosage: 200 MG, UNK
     Route: 048

REACTIONS (19)
  - Somnambulism [Unknown]
  - Tachycardia [Recovering/Resolving]
  - Hypertension [Recovering/Resolving]
  - Hypertonia [Unknown]
  - Depressed mood [Unknown]
  - Psychotic disorder [Unknown]
  - Neuroleptic malignant syndrome [Recovering/Resolving]
  - Musculoskeletal stiffness [Unknown]
  - Off label use [Unknown]
  - Extrapyramidal disorder [Recovered/Resolved]
  - Abnormal behaviour [Unknown]
  - Insomnia [Unknown]
  - Dysphagia [Unknown]
  - Psychomotor hyperactivity [Unknown]
  - Hyporeflexia [Unknown]
  - Pyrexia [Recovering/Resolving]
  - Hyperreflexia [Recovering/Resolving]
  - Decreased appetite [Unknown]
  - Mutism [Recovering/Resolving]

NARRATIVE: CASE EVENT DATE: 20141026
